FAERS Safety Report 14224076 (Version 1)
Quarter: 2017Q4

REPORT INFORMATION
  Report Type: Spontaneous
  Country: US (occurrence: US)
  Receive Date: 20171124
  Receipt Date: 20171124
  Transmission Date: 20180321
  Serious: Yes (Hospitalization)
  Sender: FDA-Public Use
  Company Number: None

PATIENT
  Age: 50 Year
  Sex: Male
  Weight: 85.5 kg

DRUGS (1)
  1. PARODONTAX [Suspect]
     Active Substance: STANNOUS FLUORIDE
     Indication: GINGIVAL BLEEDING
     Dosage: QUANTITY:2 TUBES;?
     Route: 048

REACTIONS (4)
  - Lip swelling [None]
  - Lip erythema [None]
  - Chapped lips [None]
  - Oral discomfort [None]

NARRATIVE: CASE EVENT DATE: 20171115
